FAERS Safety Report 11415384 (Version 1)
Quarter: 2015Q3

REPORT INFORMATION
  Report Type: Spontaneous
  Country: FR (occurrence: FR)
  Receive Date: 20150825
  Receipt Date: 20150825
  Transmission Date: 20151125
  Serious: Yes (Hospitalization)
  Sender: FDA-Public Use
  Company Number: FR-ROCHE-1624106

PATIENT
  Age: 83 Year
  Sex: Female

DRUGS (17)
  1. DOCETAXEL ACCORD [Suspect]
     Active Substance: DOCETAXEL
     Indication: INVASIVE DUCTAL BREAST CARCINOMA
     Dosage: 100 MG/METER SQUIRE (TOTAL DOSE: 128 MG, ONCE IN A MONTH AND DOSAGE: 4.2667 MG),
     Route: 042
     Dates: start: 20150609, end: 20150720
  2. DEXAMETHASONE. [Concomitant]
     Active Substance: DEXAMETHASONE
     Route: 065
  3. HERCEPTIN [Suspect]
     Active Substance: TRASTUZUMAB
     Indication: INVASIVE DUCTAL BREAST CARCINOMA
     Dosage: (TOTAL DOSE: 390 MG, ONCE IN A MONTH AND DOSAGE: 13 MG)
     Route: 042
     Dates: start: 20150609, end: 20150720
  4. PREDNISOLONE. [Concomitant]
     Active Substance: PREDNISOLONE
  5. PARACETAMOL [Concomitant]
     Active Substance: ACETAMINOPHEN
  6. INNOHEP [Concomitant]
     Active Substance: TINZAPARIN SODIUM
     Route: 065
  7. HERCEPTIN [Suspect]
     Active Substance: TRASTUZUMAB
     Dosage: FIRST MAINTANANCE THERAPY
     Route: 042
     Dates: start: 20150629
  8. SKENAN [Concomitant]
     Active Substance: MORPHINE SULFATE
  9. FENOFIBRATE. [Concomitant]
     Active Substance: FENOFIBRATE
     Route: 065
  10. DOCETAXEL ACCORD [Suspect]
     Active Substance: DOCETAXEL
     Dosage: SECOND MAINTANANCE THERAPY
     Route: 042
     Dates: start: 20150703, end: 20150720
  11. CODEINE [Concomitant]
     Active Substance: CODEINE
  12. DOCETAXEL ACCORD [Suspect]
     Active Substance: DOCETAXEL
     Dosage: FIRST MAINTANANCE THERAPY
     Route: 042
     Dates: start: 20150629
  13. HERCEPTIN [Suspect]
     Active Substance: TRASTUZUMAB
     Dosage: SECOND MAINTENANCE THERAPY
     Route: 042
     Dates: start: 20150703, end: 20150720
  14. DESLORATADINE. [Concomitant]
     Active Substance: DESLORATADINE
     Route: 065
  15. RANITIDINE [Concomitant]
     Active Substance: RANITIDINE\RANITIDINE HYDROCHLORIDE
     Route: 065
  16. DEXCHLORPHENIRAMINE [Concomitant]
     Active Substance: DEXCHLORPHENIRAMINE
     Route: 065
  17. ALPRAZOLAM. [Concomitant]
     Active Substance: ALPRAZOLAM
     Route: 065

REACTIONS (3)
  - Palmar-plantar erythrodysaesthesia syndrome [Not Recovered/Not Resolved]
  - Rash [Not Recovered/Not Resolved]
  - Conjunctivitis [Not Recovered/Not Resolved]

NARRATIVE: CASE EVENT DATE: 20150703
